FAERS Safety Report 10957420 (Version 1)
Quarter: 2015Q1

REPORT INFORMATION
  Report Type: Spontaneous
  Country: NL (occurrence: NL)
  Receive Date: 20150326
  Receipt Date: 20150326
  Transmission Date: 20150721
  Serious: Yes (Hospitalization)
  Sender: FDA-Public Use
  Company Number: NL-JNJFOC-20150319252

PATIENT
  Age: 13 Year
  Sex: Male
  Weight: 27 kg

DRUGS (3)
  1. MYCOPHENOLIC ACID. [Concomitant]
     Active Substance: MYCOPHENOLIC ACID
     Route: 048
     Dates: start: 2008
  2. TACROLIMUS. [Interacting]
     Active Substance: TACROLIMUS
     Indication: RENAL TRANSPLANT
     Route: 048
     Dates: start: 201501, end: 20150306
  3. ITRACONA [Suspect]
     Active Substance: ITRACONAZOLE
     Indication: FUNGAL INFECTION
     Dosage: 100 MG
     Route: 048
     Dates: start: 201502, end: 20150227

REACTIONS (2)
  - Drug interaction [Recovering/Resolving]
  - Pleural effusion [Recovering/Resolving]

NARRATIVE: CASE EVENT DATE: 20150227
